FAERS Safety Report 6769385-5 (Version None)
Quarter: 2010Q2

REPORT INFORMATION
  Report Type: 
  Country: None (occurrence: None)
  Receive Date: 20100615
  Receipt Date: 20100602
  Transmission Date: 20101027
  Serious: Yes (Other)
  Sender: FDA-Public Use
  Company Number: PHHY2010US36019

PATIENT
  Sex: Male

DRUGS (1)
  1. EXJADE [Suspect]
     Dosage: 1000 MG, DAILY
     Route: 048
     Dates: start: 20100305

REACTIONS (1)
  - BONE MARROW TRANSPLANT [None]
